FAERS Safety Report 21831087 (Version 1)
Quarter: 2023Q1

REPORT INFORMATION
  Report Type: Spontaneous
  Country: US (occurrence: None)
  Receive Date: 20230106
  Receipt Date: 20230106
  Transmission Date: 20230418
  Serious: Yes (Life-Threatening, Disabling)
  Sender: FDA-Public Use
  Company Number: None

PATIENT
  Age: 28 Year
  Sex: Male
  Weight: 103.5 kg

DRUGS (5)
  1. DEVICE\NICOTINE [Suspect]
     Active Substance: DEVICE\NICOTINE
     Indication: Product used for unknown indication
     Dates: start: 20190401, end: 20190601
  2. INVEGA SUSTENNA [Suspect]
     Active Substance: PALIPERIDONE PALMITATE
  3. TIVICAY [Concomitant]
     Active Substance: DOLUTEGRAVIR SODIUM
  4. DESCOVY [Concomitant]
     Active Substance: EMTRICITABINE\TENOFOVIR ALAFENAMIDE FUMARATE
  5. INVEGA SUSTENNA [Concomitant]
     Active Substance: PALIPERIDONE PALMITATE

REACTIONS (3)
  - Dyspnoea [None]
  - Nasal congestion [None]
  - Wheezing [None]

NARRATIVE: CASE EVENT DATE: 20190509
